FAERS Safety Report 4282960-5 (Version None)
Quarter: 2004Q1

REPORT INFORMATION
  Report Type: 
  Country: None (occurrence: None)
  Receive Date: 20040130
  Receipt Date: 20040120
  Transmission Date: 20041129
  Serious: Yes (Hospitalization)
  Sender: FDA-Public Use
  Company Number: FR-BRISTOL-MYERS SQUIBB COMPANY-12482436

PATIENT
  Age: 58 Year
  Sex: Male

DRUGS (12)
  1. FUNGIZONE [Suspect]
     Indication: PROPHYLAXIS
     Route: 048
     Dates: start: 20031024, end: 20031108
  2. CLAVENTIN [Suspect]
     Indication: PROPHYLAXIS
     Dosage: 5 G/200 MG
     Route: 042
     Dates: start: 20030919, end: 20031107
  3. BACTRIM DS [Suspect]
     Indication: PROPHYLAXIS
     Route: 030
     Dates: start: 20030919, end: 20031106
  4. CYMEVAN [Suspect]
     Indication: PROPHYLAXIS
     Route: 042
     Dates: start: 20031024, end: 20031106
  5. CELLCEPT [Suspect]
     Indication: PROPHYLAXIS
     Route: 042
     Dates: start: 20031024, end: 20031106
  6. TRIFLUCAN [Suspect]
     Indication: PROPHYLAXIS
     Dosage: 2 MG/ML
     Route: 042
     Dates: start: 20031024, end: 20031109
  7. VANCOCIN HCL [Concomitant]
  8. PROGRAF [Concomitant]
     Indication: TRANSPLANT REJECTION
     Dosage: STOPPED ON AN UNSPECIFIED DATE AT THE BEGINNING OF NOVEMBER
  9. SOLU-MEDROL [Concomitant]
     Dosage: STOPPED ON AN UNSPECIFIED DATE AT THE BEGINNING OF NOVEMBER
  10. CIFLOX [Concomitant]
     Dosage: STOPPED ON AN UNSPECIFIED DATE AT THE BEGINNING OF NOVEMBER
     Dates: end: 20031101
  11. LOXEN [Concomitant]
     Dosage: STOPPED ON AN UNSPECIFIED DATE AT THE BEGINNING OF NOVEMBER
     Dates: end: 20031101
  12. FUROSEMIDE [Concomitant]
     Dosage: STOPPED ON AN UNSPECIFIED DATE AT THE BEGINNING OF NOVEMBER
     Dates: start: 20031101, end: 20031101

REACTIONS (1)
  - BONE MARROW DEPRESSION [None]
